FAERS Safety Report 4864060-6 (Version None)
Quarter: 2005Q4

REPORT INFORMATION
  Report Type: 
  Country: None (occurrence: None)
  Receive Date: 20051222
  Receipt Date: 20051214
  Transmission Date: 20060501
  Serious: Yes (Hospitalization)
  Sender: FDA-Public Use
  Company Number: US-AMGEN-US161344

PATIENT
  Age: 14 Year
  Sex: Female

DRUGS (1)
  1. ARANESP [Suspect]
     Indication: DIALYSIS
     Dates: end: 20051202

REACTIONS (2)
  - ANAEMIA [None]
  - RETICULOCYTE COUNT DECREASED [None]
